FAERS Safety Report 15187652 (Version 2)
Quarter: 2018Q3

REPORT INFORMATION
  Report Type: Spontaneous
  Country: LB (occurrence: LB)
  Receive Date: 20180724
  Receipt Date: 20180725
  Transmission Date: 20181010
  Serious: Yes (Other)
  Sender: FDA-Public Use
  Company Number: LB-BEH-2018092918

PATIENT
  Age: 2 Year
  Sex: Male

DRUGS (8)
  1. MIDAZOLAM [Concomitant]
     Active Substance: MIDAZOLAM HYDROCHLORIDE
     Route: 065
  2. SOLU?MEDROL [Concomitant]
     Active Substance: METHYLPREDNISOLONE SODIUM SUCCINATE
     Route: 065
  3. ALBUMIN HUMAN (INN) [Concomitant]
     Active Substance: ALBUMIN HUMAN
     Indication: ANURIA
  4. ALBUMIN HUMAN (INN) [Concomitant]
     Active Substance: ALBUMIN HUMAN
     Indication: HYPOALBUMINAEMIA
     Route: 042
  5. THIOPENTAL [Concomitant]
     Active Substance: THIOPENTAL
     Route: 065
  6. ECULIZUMAB [Concomitant]
     Active Substance: ECULIZUMAB
     Indication: ATYPICAL HAEMOLYTIC URAEMIC SYNDROME
  7. HUMAN IMMUNOGLOBULIN IV (INN) [Suspect]
     Active Substance: HUMAN IMMUNOGLOBULIN G
     Indication: THROMBOCYTOPENIA
     Route: 042
  8. PHENYTOIN. [Concomitant]
     Active Substance: PHENYTOIN
     Route: 065

REACTIONS (4)
  - Vasogenic cerebral oedema [Unknown]
  - Posterior reversible encephalopathy syndrome [Recovered/Resolved]
  - Depressed level of consciousness [Recovered/Resolved]
  - Hypertension [Unknown]
